FAERS Safety Report 20625051 (Version 1)
Quarter: 2022Q1

REPORT INFORMATION
  Report Type: Report from Study
  Country: GB (occurrence: GB)
  Receive Date: 20220323
  Receipt Date: 20220323
  Transmission Date: 20220423
  Serious: Yes (Hospitalization)
  Sender: FDA-Public Use
  Company Number: GB-NOVARTISPH-NVSC2022GB039720

PATIENT
  Sex: Female

DRUGS (2)
  1. COSENTYX [Suspect]
     Active Substance: SECUKINUMAB
     Indication: Ankylosing spondylitis
     Dosage: UNK UNK, QMO
     Route: 058
  2. COSENTYX [Suspect]
     Active Substance: SECUKINUMAB
     Dosage: 150 MG, QMO
     Route: 058
     Dates: start: 20210203

REACTIONS (5)
  - COVID-19 [Not Recovered/Not Resolved]
  - Bacterial infection [Unknown]
  - Orthostatic hypotension [Unknown]
  - Malaise [Unknown]
  - Tonsillitis [Unknown]

NARRATIVE: CASE EVENT DATE: 20220218
